FAERS Safety Report 9632484 (Version 3)
Quarter: 2013Q4

REPORT INFORMATION
  Report Type: Spontaneous
  Country: JP (occurrence: None)
  Receive Date: 20131016
  Receipt Date: 20131209
  Transmission Date: 20140711
  Serious: Yes (Other)
  Sender: FDA-Public Use
  Company Number: JP-013257

PATIENT
  Age: 71 Year
  Sex: Male

DRUGS (1)
  1. DEGARELIX [Suspect]
     Indication: PROSTATE CANCER
     Route: 058
     Dates: start: 20130710, end: 20130710

REACTIONS (5)
  - Injection site erythema [None]
  - Anaphylactoid reaction [None]
  - Intentional drug misuse [None]
  - Injection site induration [None]
  - Injection site urticaria [None]
